FAERS Safety Report 8526961 (Version 4)
Quarter: 2012Q4

REPORT INFORMATION
  Report Type: 
  Country: US (occurrence: US)
  Receive Date: 20120424
  Receipt Date: 20121217
  Transmission Date: 20130627
  Serious: Yes (Hospitalization)
  Sender: FDA-Public Use
  Company Number: US-BAYER-2012-038102

PATIENT
  Age: 19 Year
  Sex: Female
  Weight: 72.56 kg

DRUGS (3)
  1. YASMIN [Suspect]
     Indication: CONTRACEPTION
     Dosage: UNK
     Dates: start: 20041201, end: 200502
  2. YASMIN [Suspect]
     Indication: ACNE
  3. BEN GAY [Concomitant]

REACTIONS (18)
  - Deep vein thrombosis [None]
  - Pulmonary embolism [None]
  - Deep vein thrombosis [None]
  - Vena cava thrombosis [None]
  - Deep vein thrombosis [None]
  - Skin discolouration [None]
  - Oedema peripheral [None]
  - Pain in extremity [None]
  - Injury [None]
  - Depression [None]
  - Emotional distress [None]
  - Fear of death [None]
  - Nervousness [None]
  - Pain [None]
  - General physical health deterioration [None]
  - Anxiety [None]
  - Anhedonia [None]
  - Pulmonary embolism [None]
